FAERS Safety Report 9270204 (Version 1)
Quarter: 2013Q2

REPORT INFORMATION
  Report Type: Spontaneous
  Country: GB (occurrence: GB)
  Receive Date: 20130503
  Receipt Date: 20130503
  Transmission Date: 20140414
  Serious: Yes (Hospitalization)
  Sender: FDA-Public Use
  Company Number: GB-GLAXOSMITHKLINE-B0887110A

PATIENT
  Age: 71 Year
  Sex: Male

DRUGS (2)
  1. VOTRIENT [Suspect]
     Indication: METASTATIC RENAL CELL CARCINOMA
     Dosage: 800MG PER DAY
     Route: 048
     Dates: start: 20130314, end: 20130325
  2. ENALAPRIL [Concomitant]

REACTIONS (3)
  - Liver function test abnormal [Recovering/Resolving]
  - Epistaxis [Recovered/Resolved]
  - Platelet count decreased [Recovered/Resolved]
